FAERS Safety Report 6579571-5 (Version None)
Quarter: 2010Q1

REPORT INFORMATION
  Report Type: 
  Country: None (occurrence: None)
  Receive Date: 20100212
  Receipt Date: 20100204
  Transmission Date: 20100710
  Serious: Yes (Death, Life-Threatening, Hospitalization)
  Sender: FDA-Public Use
  Company Number: FR-PFIZER INC-2010008983

PATIENT
  Age: 44 Year
  Sex: Male

DRUGS (8)
  1. ARACYTINE [Suspect]
     Indication: ACUTE MYELOID LEUKAEMIA
     Dosage: 1G DAILY ON DAYS 1,2,3 AND 2G BID ON DAYS 8,9,10(INDUCTION)
     Route: 042
     Dates: start: 20080104
  2. ARACYTINE [Suspect]
     Dosage: 6 G DAILY FROM DAY 1 TO 5 (CONSOLIDATION)
     Route: 042
  3. ARACYTINE [Suspect]
     Dosage: 2 G, 2X/DAY
     Route: 042
     Dates: start: 20081128, end: 20081202
  4. ZAVEDOS [Suspect]
     Indication: ACUTE MYELOID LEUKAEMIA
     Dosage: 24 MG DAILY
     Route: 042
     Dates: start: 20081128, end: 20081130
  5. MYLOTARG [Suspect]
     Indication: ACUTE MYELOID LEUKAEMIA
     Dosage: 12 MG DAILY
     Route: 042
     Dates: start: 20081128, end: 20081128
  6. TAZOCILLINE [Concomitant]
     Indication: STREPTOCOCCAL SEPSIS
     Dosage: UNK
     Route: 042
     Dates: start: 20081206, end: 20081211
  7. AMIKIN [Concomitant]
     Indication: STREPTOCOCCAL SEPSIS
     Dosage: UNK
     Route: 030
     Dates: start: 20081206, end: 20081211
  8. TARGOCID [Concomitant]
     Indication: STREPTOCOCCAL SEPSIS
     Dosage: UNK
     Route: 042
     Dates: start: 20081207, end: 20081209

REACTIONS (1)
  - VENOOCCLUSIVE LIVER DISEASE [None]
